FAERS Safety Report 17329839 (Version 1)
Quarter: 2020Q1

REPORT INFORMATION
  Report Type: Spontaneous
  Country: US (occurrence: US)
  Receive Date: 20200128
  Receipt Date: 20200128
  Transmission Date: 20200409
  Serious: Yes (Hospitalization, Other)
  Sender: FDA-Public Use
  Company Number: US-009507513-2001USA009310

PATIENT
  Age: 22 Year
  Sex: Female

DRUGS (1)
  1. KEYTRUDA [Suspect]
     Active Substance: PEMBROLIZUMAB
     Indication: DIFFUSE LARGE B-CELL LYMPHOMA
     Dosage: 200 MILLIGRAM, Q3W, FOR 3 CYCLES
     Route: 042

REACTIONS (1)
  - Graft versus host disease [Recovering/Resolving]
